FAERS Safety Report 15786436 (Version 1)
Quarter: 2019Q1

REPORT INFORMATION
  Report Type: Report from Study
  Country: CO (occurrence: CO)
  Receive Date: 20190103
  Receipt Date: 20190103
  Transmission Date: 20190417
  Serious: Yes (Hospitalization)
  Sender: FDA-Public Use
  Company Number: CO-JNJFOC-20181234851

PATIENT
  Age: 49 Year
  Sex: Male
  Weight: 54 kg

DRUGS (3)
  1. IMBRUVICA [Suspect]
     Active Substance: IBRUTINIB
     Indication: CHRONIC LYMPHOCYTIC LEUKAEMIA
     Route: 048
     Dates: start: 20170326, end: 20180408
  2. IMBRUVICA [Suspect]
     Active Substance: IBRUTINIB
     Indication: CHRONIC LYMPHOCYTIC LEUKAEMIA
     Route: 048
     Dates: start: 20180409, end: 2018
  3. IMBRUVICA [Suspect]
     Active Substance: IBRUTINIB
     Indication: CHRONIC LYMPHOCYTIC LEUKAEMIA
     Route: 048
     Dates: start: 201805

REACTIONS (4)
  - Sinusitis [Recovering/Resolving]
  - Pneumonia [Recovering/Resolving]
  - Tachycardia [Recovering/Resolving]
  - Genital rash [Recovering/Resolving]

NARRATIVE: CASE EVENT DATE: 20181223
